FAERS Safety Report 24384791 (Version 1)
Quarter: 2024Q4

REPORT INFORMATION
  Report Type: Spontaneous
  Country: US (occurrence: None)
  Receive Date: 20241001
  Receipt Date: 20241001
  Transmission Date: 20250115
  Serious: Yes (Other)
  Sender: Public
  Company Number: None

PATIENT
  Age: 82 Year
  Sex: Male

DRUGS (11)
  1. ABIRATERONE ACETATE [Suspect]
     Active Substance: ABIRATERONE ACETATE
     Indication: Prostate cancer
     Route: 048
     Dates: start: 20240627
  2. ACETAMIN TAB 500MG [Concomitant]
  3. CLEARLAX POW [Concomitant]
  4. CYCLOBENZAPR TAB 1 0MG [Concomitant]
  5. ELIQUIS [Concomitant]
     Active Substance: APIXABAN
  6. LAMICTAL TAB 100MG [Concomitant]
  7. LIVALO TAB 4MG [Concomitant]
  8. METOPROL TAR TAB 25MG [Concomitant]
  9. NITROGL YCERN SUB 0.4MG [Concomitant]
  10. OMEPRAZOLE TAB 20MG [Concomitant]
  11. RANOLAZINE TAB 1000MG [Concomitant]

REACTIONS (2)
  - Hospice care [None]
  - Therapy cessation [None]

NARRATIVE: CASE EVENT DATE: 20240930
